FAERS Safety Report 6165686-2 (Version None)
Quarter: 2009Q2

REPORT INFORMATION
  Report Type: 
  Country: None (occurrence: None)
  Receive Date: 20090423
  Receipt Date: 20090316
  Transmission Date: 20091009
  Serious: Yes (Other)
  Sender: FDA-Public Use
  Company Number: US-AMGEN-US342940

PATIENT
  Sex: Female

DRUGS (8)
  1. NPLATE [Suspect]
     Indication: IDIOPATHIC THROMBOCYTOPENIC PURPURA
     Dates: start: 20081017
  2. AMBIEN [Concomitant]
  3. PERCOCET [Concomitant]
  4. CORTICOSTEROIDS [Concomitant]
     Dates: start: 20050501, end: 20080601
  5. IMMUNOGLOBULINS [Concomitant]
     Route: 042
  6. AZATHIOPRINE SODIUM [Concomitant]
     Dates: start: 20050701
  7. CELLCEPT [Concomitant]
     Dates: start: 20060101
  8. WINRHO [Concomitant]
     Dates: start: 20050501

REACTIONS (1)
  - PULMONARY EMBOLISM [None]
